FAERS Safety Report 6348940-0 (Version None)
Quarter: 2009Q3

REPORT INFORMATION
  Report Type: 
  Country: None (occurrence: None)
  Receive Date: 20090908
  Receipt Date: 20090901
  Transmission Date: 20100115
  Serious: Yes (Other)
  Sender: FDA-Public Use
  Company Number: 09US003358

PATIENT
  Age: 65 Year
  Sex: Female
  Weight: 59 kg

DRUGS (1)
  1. ACETAMINOPHEN [Suspect]
     Indication: SINUS HEADACHE
     Dosage: 1000 MG, PRN, ORAL
     Route: 048
     Dates: start: 20090401

REACTIONS (9)
  - BACK PAIN [None]
  - CHEST PAIN [None]
  - CONFUSIONAL STATE [None]
  - FATIGUE [None]
  - HEADACHE [None]
  - LIGAMENT SPRAIN [None]
  - MUSCLE STRAIN [None]
  - NECK PAIN [None]
  - ROAD TRAFFIC ACCIDENT [None]
